FAERS Safety Report 8943203 (Version 1)
Quarter: 2012Q4

REPORT INFORMATION
  Report Type: Report from Study
  Country: AU (occurrence: AU)
  Receive Date: 20121204
  Receipt Date: 20121204
  Transmission Date: 20130627
  Serious: Yes (Hospitalization)
  Sender: FDA-Public Use
  Company Number: AU-MERCK-1211AUS012658

PATIENT
  Age: 32 Year
  Sex: Female
  Weight: 55 kg

DRUGS (7)
  1. TEMOZOLOMIDE [Suspect]
     Indication: GLIOBLASTOMA MULTIFORME
     Dosage: 120 mg, qd
     Route: 048
     Dates: start: 20100113, end: 20100218
  2. TEMOZOLOMIDE [Suspect]
     Dosage: 120 mg, qd
     Route: 048
     Dates: start: 20100222
  3. STUDY DRUG (UNSPECIFIED) [Suspect]
     Indication: GLIOBLASTOMA MULTIFORME
     Dosage: 2/52
     Route: 042
     Dates: start: 20100113
  4. OMEPRAZOLE [Concomitant]
     Dosage: 40 mg, UNK
     Dates: start: 199606
  5. DEXAMETHASONE [Concomitant]
     Dosage: 2 mg, qd
     Dates: start: 20100210, end: 20100217
  6. PAROXETINE [Concomitant]
     Dosage: 30 mg, UNK
     Dates: start: 200707
  7. LEVETIRACETAM [Concomitant]
     Dosage: 500 mg, UNK
     Dates: start: 20100113

REACTIONS (1)
  - Delirium [Recovered/Resolved]
